FAERS Safety Report 11968440 (Version 2)
Quarter: 2016Q1

REPORT INFORMATION
  Report Type: Spontaneous
  Country: BR (occurrence: BR)
  Receive Date: 20160128
  Receipt Date: 20160226
  Transmission Date: 20160526
  Serious: Yes (Hospitalization)
  Sender: FDA-Public Use
  Company Number: BR-AMGEN-BRASP2016009066

PATIENT
  Age: 55 Year
  Sex: Female
  Weight: 45 kg

DRUGS (1)
  1. ENBREL [Suspect]
     Active Substance: ETANERCEPT
     Indication: RHEUMATOID ARTHRITIS
     Dosage: 50 MG, ONCE WEEKLY
     Route: 058
     Dates: start: 201503, end: 201509

REACTIONS (7)
  - Pain in extremity [Unknown]
  - Tonsillitis [Unknown]
  - Dyspnoea [Not Recovered/Not Resolved]
  - Pyrexia [Unknown]
  - Pharyngitis [Unknown]
  - Arthralgia [Unknown]
  - Cough [Unknown]

NARRATIVE: CASE EVENT DATE: 2015
